FAERS Safety Report 23344428 (Version 1)
Quarter: 2023Q4

REPORT INFORMATION
  Report Type: Spontaneous
  Country: CN (occurrence: CN)
  Receive Date: 20231228
  Receipt Date: 20231228
  Transmission Date: 20240110
  Serious: Yes (Other)
  Sender: FDA-Public Use
  Company Number: None

PATIENT
  Age: 58 Year
  Sex: Female
  Weight: 80.0 kg

DRUGS (2)
  1. OLANZAPINE [Suspect]
     Active Substance: OLANZAPINE
     Indication: Schizophrenia
     Dosage: 10MG,QD
     Route: 048
     Dates: start: 20190501, end: 20231211
  2. SERTRALINE HYDROCHLORIDE [Concomitant]
     Active Substance: SERTRALINE HYDROCHLORIDE
     Indication: Depression
     Dosage: 100MG,QD
     Route: 048
     Dates: start: 20101101, end: 20231219

REACTIONS (2)
  - Hyperpyrexia [Recovering/Resolving]
  - Myotonia [Recovering/Resolving]

NARRATIVE: CASE EVENT DATE: 20231213
